FAERS Safety Report 5826754-5 (Version None)
Quarter: 2008Q4

REPORT INFORMATION
  Report Type: 
  Country: None (occurrence: None)
  Receive Date: 20080725
  Receipt Date: 20080526
  Transmission Date: 20090506
  Serious: Yes (Hospitalization)
  Sender: FDA-Public Use
  Company Number: GXKR2008US04747

PATIENT
  Age: 86 Year
  Sex: Male

DRUGS (21)
  1. ACETYLSALICYLIC ACID SRT [Suspect]
  2. CLOPIDOGREL [Suspect]
  3. CYPROHEPTADINE HCL [Suspect]
     Dosage: 4 MG
  4. FAMOTIDINE [Suspect]
     Dosage: 40 MG
  5. FLUNISOLIDE [Suspect]
  6. FUROSEMIDE [Suspect]
     Dosage: 20 MG, QW3
  7. ISOSORBIDE MONONITRATE [Suspect]
     Dosage: 15 MG
  8. LISINOPRIL [Suspect]
     Dosage: 2.5 MG
  9. METOCLOPRAMIDE HYDROCHLORIDE [Suspect]
     Dosage: 10 MG, QID
  10. METOPROLOL TARTRATE [Suspect]
     Dosage: 75 MG
  11. SERTRALINE [Suspect]
     Dosage: 75 MG
  12. SIMVASTATIN [Suspect]
     Dosage: 40 MG, QHS
  13. IPRATROPIUM BROMIDE AND ALBUTEROL SULFATE [Suspect]
  14. NITROGLYCERIN [Suspect]
     Dosage: 0.4 MG, PRN, SUBLINGUAL
     Route: 060
  15. DONEPEZIL HCL [Suspect]
     Dosage: 10 MG
  16. NPH INSULIN [Suspect]
     Indication: DIABETES MELLITUS
     Dosage: 15 U, EVERY MORNING
  17. INSULIN ASPART [Suspect]
     Indication: DIABETES MELLITUS
  18. MOMETASONE FUROATE [Suspect]
     Dosage: INHALATION
     Route: 055
  19. LEVETIRACETAM [Suspect]
     Indication: CONVULSION PROPHYLAXIS
     Dosage: 1000 MG, BID; 500 MG, BID
  20. MAGNESIUM GLUCONATE [Suspect]
     Dosage: 500 MG
  21. MODAFINIL [Suspect]
     Indication: APATHY

REACTIONS (6)
  - ANOREXIA [None]
  - DEHYDRATION [None]
  - GENERAL PHYSICAL HEALTH DETERIORATION [None]
  - HYPOPHAGIA [None]
  - IMPAIRED GASTRIC EMPTYING [None]
  - NAUSEA [None]
